FAERS Safety Report 10162925 (Version 1)
Quarter: 2014Q2

REPORT INFORMATION
  Report Type: Spontaneous
  Country: US (occurrence: US)
  Receive Date: 20140509
  Receipt Date: 20140509
  Transmission Date: 20141212
  Serious: No
  Sender: FDA-Public Use
  Company Number: US-PFIZER INC-2014125623

PATIENT
  Age: 83 Year
  Sex: Male

DRUGS (3)
  1. DAYPRO [Suspect]
     Dosage: UNK
  2. FLOMAX [Suspect]
     Dosage: UNK
  3. TETANUS VACCINE [Suspect]
     Indication: IMMUNISATION
     Dosage: 1 DF, SINGLE

REACTIONS (1)
  - Drug hypersensitivity [Unknown]
